FAERS Safety Report 6307590-2 (Version None)
Quarter: 2009Q3

REPORT INFORMATION
  Report Type: 
  Country: None (occurrence: None)
  Receive Date: 20090811
  Receipt Date: 20090728
  Transmission Date: 20100115
  Serious: Yes (Hospitalization)
  Sender: FDA-Public Use
  Company Number: 236053K09USA

PATIENT
  Age: 16 Year
  Sex: Male

DRUGS (6)
  1. REBIF [Suspect]
     Indication: OFF LABEL USE
     Dosage: 44 MCG, 3 IN 1 WEEKS, SUBCUTANEOUS
     Route: 058
     Dates: start: 20081001, end: 20090528
  2. REMERON [Suspect]
     Indication: DEPRESSION
     Dates: start: 20090101
  3. KLONOPIN [Suspect]
     Indication: DEPRESSION
  4. ZOLOFT [Suspect]
     Indication: DEPRESSION
  5. XANAX [Suspect]
  6. MOTRIN [Suspect]

REACTIONS (10)
  - ANXIETY [None]
  - CONDITION AGGRAVATED [None]
  - DEPRESSION [None]
  - HYPOAESTHESIA [None]
  - MULTIPLE DRUG OVERDOSE [None]
  - MULTIPLE SCLEROSIS RELAPSE [None]
  - OFF LABEL USE [None]
  - SKIN LACERATION [None]
  - SLEEP DISORDER [None]
  - SUICIDE ATTEMPT [None]
